FAERS Safety Report 6833690-4 (Version None)
Quarter: 2010Q3

REPORT INFORMATION
  Report Type: 
  Country: None (occurrence: None)
  Receive Date: 20100712
  Receipt Date: 20070331
  Transmission Date: 20110219
  Serious: Yes (Other)
  Sender: FDA-Public Use
  Company Number: US-PFIZER INC-2007026870

PATIENT
  Sex: Male
  Weight: 95.3 kg

DRUGS (3)
  1. CHANTIX [Suspect]
     Indication: SMOKING CESSATION THERAPY
     Dates: start: 20070326
  2. NARDIL [Suspect]
     Indication: DEPRESSION
  3. WELCHOL [Concomitant]

REACTIONS (2)
  - DEPRESSION [None]
  - TREMOR [None]
